FAERS Safety Report 4627425-3 (Version None)
Quarter: 2005Q1

REPORT INFORMATION
  Report Type: 
  Country: None (occurrence: None)
  Receive Date: 20050331
  Receipt Date: 20050318
  Transmission Date: 20050727
  Serious: Yes (Other)
  Sender: FDA-Public Use
  Company Number: HQWYE204621MAR05

PATIENT
  Age: 52 Year
  Sex: Female

DRUGS (3)
  1. RAPAMUNE [Suspect]
     Indication: PROPHYLAXIS AGAINST TRANSPLANT REJECTION
     Dosage: 7 MG 1X PER 1 DAY, ORAL
     Route: 048
     Dates: start: 20050119
  2. CORTICOSTEROID NOS [Suspect]
     Dosage: ORAL
     Route: 048
  3. MYCOPHENOLATE MOFETIL [Suspect]
     Dosage: ORAL
     Route: 048

REACTIONS (1)
  - KIDNEY TRANSPLANT REJECTION [None]
